FAERS Safety Report 16569812 (Version 1)
Quarter: 2019Q3

REPORT INFORMATION
  Report Type: Spontaneous
  Country: NL (occurrence: NL)
  Receive Date: 20190715
  Receipt Date: 20190715
  Transmission Date: 20191004
  Serious: Yes (Other)
  Sender: FDA-Public Use
  Company Number: NL-009507513-1907NLD004060

PATIENT
  Sex: Female
  Weight: 82 kg

DRUGS (4)
  1. DICLOFENAC SODIUM. [Concomitant]
     Active Substance: DICLOFENAC SODIUM
     Dosage: WHEN NECESSARY WITH MIGRAINE ATTACK
  2. POLYETHYLENE GLYCOL [Concomitant]
     Active Substance: POLYETHYLENE GLYCOLS
     Dosage: 1 SACHET PER DAY
  3. VITAMIN D (UNSPECIFIED) [Concomitant]
     Active Substance: VITAMIN D NOS
     Dosage: UNK
  4. MOMETASONE FUROATE. [Suspect]
     Active Substance: MOMETASONE FUROATE
     Indication: HYPERSENSITIVITY
     Dosage: ONCE PER DAY 2 SPRAYS, IF SUFFICIENT RESULT ONCE PER DAY 1 SPRAY. I DID THE LATTER
     Route: 045
     Dates: start: 2014, end: 201806

REACTIONS (1)
  - Retinitis [Recovered/Resolved with Sequelae]
